FAERS Safety Report 14912498 (Version 2)
Quarter: 2018Q2

REPORT INFORMATION
  Report Type: Report from Study
  Country: PL (occurrence: PL)
  Receive Date: 20180518
  Receipt Date: 20180613
  Transmission Date: 20180711
  Serious: Yes (Hospitalization)
  Sender: FDA-Public Use
  Company Number: PL-EISAI MEDICAL RESEARCH-EC-2018-038351

PATIENT
  Age: 64 Year
  Sex: Male
  Weight: 82 kg

DRUGS (10)
  1. LENVATINIB [Suspect]
     Active Substance: LENVATINIB
     Indication: RENAL CELL CARCINOMA
     Route: 048
     Dates: start: 20180315, end: 20180422
  2. ATORIS [Concomitant]
     Active Substance: ATORVASTATIN CALCIUM
  3. LENVATINIB [Suspect]
     Active Substance: LENVATINIB
     Route: 048
     Dates: start: 20180427, end: 20180502
  4. POLOCARD [Concomitant]
     Active Substance: ASPIRIN
  5. LECALPIN [Concomitant]
  6. EVEROLIMUS. [Suspect]
     Active Substance: EVEROLIMUS
     Indication: RENAL CELL CARCINOMA
     Route: 048
     Dates: start: 20180315, end: 20180422
  7. EVEROLIMUS. [Suspect]
     Active Substance: EVEROLIMUS
     Route: 048
     Dates: start: 20180427, end: 20180502
  8. NEBICARD [Concomitant]
     Active Substance: NEBIVOLOL HYDROCHLORIDE
  9. CONTROLOC [Concomitant]
     Active Substance: PANTOPRAZOLE SODIUM
  10. VANATEX HCT [Concomitant]

REACTIONS (1)
  - Pancreatitis acute [Recovering/Resolving]

NARRATIVE: CASE EVENT DATE: 20180419
